FAERS Safety Report 10146607 (Version 1)
Quarter: 2014Q2

REPORT INFORMATION
  Report Type: Spontaneous
  Country: CA (occurrence: CA)
  Receive Date: 20140501
  Receipt Date: 20140501
  Transmission Date: 20141212
  Serious: Yes (Other)
  Sender: FDA-Public Use
  Company Number: CA-GLAXOSMITHKLINE-A1071263A

PATIENT
  Age: 47 Year
  Sex: Male
  Weight: 102.3 kg

DRUGS (6)
  1. NICORETTE 4MG [Suspect]
     Indication: SMOKING CESSATION THERAPY
     Route: 002
  2. NICODERM CQ 21MG [Suspect]
     Indication: SMOKING CESSATION THERAPY
     Route: 062
  3. ANTI-ASTHMA MEDICATION [Concomitant]
     Indication: ASTHMA
  4. SERTRALINE [Concomitant]
     Indication: ANXIETY
     Route: 065
  5. CHAMPIX [Concomitant]
     Indication: SMOKING CESSATION THERAPY
     Route: 065
  6. ZYBAN [Concomitant]
     Indication: SMOKING CESSATION THERAPY
     Route: 065

REACTIONS (6)
  - Lower respiratory tract infection [Unknown]
  - Tremor [Unknown]
  - Palpitations [Unknown]
  - Overdose [Unknown]
  - Drug ineffective [Unknown]
  - Product quality issue [Unknown]
